FAERS Safety Report 7900993-1 (Version None)
Quarter: 2011Q4

REPORT INFORMATION
  Report Type: 
  Country: None (occurrence: None)
  Receive Date: 20111108
  Receipt Date: 20111102
  Transmission Date: 20120403
  Serious: Yes (Other)
  Sender: FDA-Public Use
  Company Number: US-PFIZER INC-2011269561

PATIENT
  Sex: Female

DRUGS (7)
  1. CYMBALTA [Concomitant]
     Indication: BIPOLAR DISORDER
     Dosage: UNK
  2. LYRICA [Suspect]
     Dosage: 200 MG, 3X/DAY
     Route: 048
  3. LYRICA [Suspect]
     Dosage: 200 MG, 4X/DAY
     Route: 048
     Dates: start: 20110101, end: 20111021
  4. CORTISONE ACETATE [Suspect]
     Indication: NEURALGIA
     Dosage: UNK
  5. ATIVAN [Concomitant]
     Indication: NERVOUS SYSTEM DISORDER
     Dosage: UNK
  6. LYRICA [Suspect]
     Indication: FIBROMYALGIA
     Dosage: 200 MG, 2X/DAY
     Route: 048
     Dates: start: 20070101
  7. WELLBUTRIN [Concomitant]
     Indication: BIPOLAR DISORDER
     Dosage: UNK, DAILY

REACTIONS (3)
  - INCORRECT DOSE ADMINISTERED [None]
  - DRUG INEFFECTIVE [None]
  - INFLUENZA LIKE ILLNESS [None]
